FAERS Safety Report 12010317 (Version 2)
Quarter: 2019Q3

REPORT INFORMATION
  Report Type: Spontaneous
  Country: FR (occurrence: FR)
  Receive Date: 20160205
  Receipt Date: 20190724
  Transmission Date: 20191004
  Serious: Yes (Hospitalization, Other)
  Sender: FDA-Public Use
  Company Number: FR-PFIZER INC-2016058558

PATIENT
  Age: 16 Year
  Sex: Male
  Weight: 58.3 kg

DRUGS (6)
  1. PLITICAN [Suspect]
     Active Substance: ALIZAPRIDE HYDROCHLORIDE
     Indication: PREMEDICATION
     Dosage: UNK
     Dates: start: 201512
  2. CISPLATINE ACCORD [Suspect]
     Active Substance: CISPLATIN
     Indication: NASOPHARYNGEAL CANCER
     Dosage: UNK, CYCLIC
     Route: 041
     Dates: start: 20151209, end: 20151209
  3. EMEND [Interacting]
     Active Substance: APREPITANT
     Indication: PREMEDICATION
     Dosage: UNK
     Dates: start: 201512, end: 201512
  4. SOLU-MEDROL [Suspect]
     Active Substance: METHYLPREDNISOLONE SODIUM SUCCINATE
     Indication: PREMEDICATION
     Dosage: UNK
     Dates: start: 201512
  5. FLUOROURACIL ACCORD [Interacting]
     Active Substance: FLUOROURACIL
     Indication: NASOPHARYNGEAL CANCER
     Dosage: UNK, CYCLIC
     Route: 041
     Dates: start: 20151210, end: 20160111
  6. ZOPHREN /00955301/ [Suspect]
     Active Substance: ONDANSETRON
     Indication: PREMEDICATION
     Dosage: UNK
     Dates: start: 201512

REACTIONS (9)
  - Drug interaction [Not Recovered/Not Resolved]
  - Hypochloraemia [Unknown]
  - Hyperammonaemic encephalopathy [Recovered/Resolved]
  - Hypokalaemia [Unknown]
  - Hypophosphataemia [Unknown]
  - Sepsis [Unknown]
  - Hyperammonaemia [Not Recovered/Not Resolved]
  - Hyponatraemia [Recovered/Resolved]
  - Blood urea increased [Unknown]

NARRATIVE: CASE EVENT DATE: 201512
